FAERS Safety Report 16284509 (Version 5)
Quarter: 2019Q3

REPORT INFORMATION
  Report Type: Report from Study
  Country: None (occurrence: NL)
  Receive Date: 20190508
  Receipt Date: 20190730
  Transmission Date: 20191004
  Serious: Yes (Other)
  Sender: FDA-Public Use
  Company Number: NL-ABBVIE-19S-114-2773281-00

PATIENT
  Age: 70 Year
  Sex: Female
  Weight: 69 kg

DRUGS (2)
  1. LAXANS [Concomitant]
     Indication: ABNORMAL FAECES
     Route: 065
  2. DUODOPA [Suspect]
     Active Substance: CARBIDOPA\LEVODOPA
     Indication: PARKINSON^S DISEASE
     Dosage: 16 HOUR ADMINISTRATION?MD 7.2, CD 2.1 ED 1.0
     Route: 050
     Dates: start: 20190328

REACTIONS (8)
  - Neoplasm [Not Recovered/Not Resolved]
  - Tension [Not Recovered/Not Resolved]
  - Gastrectomy [Recovering/Resolving]
  - Dyschezia [Recovered/Resolved with Sequelae]
  - Foot deformity [Not Recovered/Not Resolved]
  - Parkinson^s disease [Recovered/Resolved]
  - Stress [Not Recovered/Not Resolved]
  - Muscle spasms [Not Recovered/Not Resolved]

NARRATIVE: CASE EVENT DATE: 2019
